FAERS Safety Report 23109943 (Version 2)
Quarter: 2023Q4

REPORT INFORMATION
  Report Type: Report from Study
  Country: US (occurrence: US)
  Receive Date: 20231026
  Receipt Date: 20231115
  Transmission Date: 20240109
  Serious: No
  Sender: FDA-Public Use
  Company Number: US-002147023-NVSC2023US228090

PATIENT
  Age: 49 Year
  Sex: Male

DRUGS (2)
  1. ENTRESTO [Suspect]
     Active Substance: SACUBITRIL\VALSARTAN
     Indication: Cardiac failure
     Dosage: 1 DOSAGE FORM, BID
     Route: 048
     Dates: start: 20231022
  2. ENTRESTO [Suspect]
     Active Substance: SACUBITRIL\VALSARTAN
     Dosage: 1 DOSAGE FORM, BID
     Route: 065

REACTIONS (9)
  - Chest discomfort [Recovered/Resolved]
  - Chest pain [Unknown]
  - Pain in extremity [Recovered/Resolved]
  - Heart rate decreased [Unknown]
  - Nocturia [Unknown]
  - Pain in extremity [Unknown]
  - Headache [Unknown]
  - Hypotension [Unknown]
  - Dizziness [Not Recovered/Not Resolved]

NARRATIVE: CASE EVENT DATE: 20231023
